FAERS Safety Report 5965562-1 (Version None)
Quarter: 2008Q4

REPORT INFORMATION
  Report Type: 
  Country: None (occurrence: None)
  Receive Date: 20081125
  Receipt Date: 20080129
  Transmission Date: 20090506
  Serious: Yes (Other)
  Sender: FDA-Public Use
  Company Number: US-AMGEN-KDL258509

PATIENT
  Sex: Male
  Weight: 129.8 kg

DRUGS (7)
  1. ENBREL [Suspect]
     Indication: OSTEOARTHRITIS
     Route: 058
     Dates: start: 20071227, end: 20071228
  2. ENBREL [Suspect]
     Indication: PSORIASIS
  3. METHOTREXATE [Concomitant]
     Route: 048
     Dates: start: 20050701
  4. FOLIC ACID [Concomitant]
     Dates: start: 20050701
  5. ALEVE [Concomitant]
  6. COREG [Concomitant]
  7. NASONEX [Concomitant]

REACTIONS (3)
  - FLUSHING [None]
  - HYPERSENSITIVITY [None]
  - PHOTOSENSITIVITY REACTION [None]
